FAERS Safety Report 8222760-4 (Version None)
Quarter: 2012Q1

REPORT INFORMATION
  Report Type: 
  Country: None (occurrence: None)
  Receive Date: 20120315
  Receipt Date: 20120306
  Transmission Date: 20120608
  Serious: Yes (Hospitalization)
  Sender: FDA-Public Use
  Company Number: 2012SP012482

PATIENT
  Age: 41 Year
  Sex: Male

DRUGS (8)
  1. ASPIRIN [Concomitant]
  2. TRUVADA [Concomitant]
  3. ARANESP [Concomitant]
  4. LEUCOVORIN CALCIUM [Concomitant]
  5. VICTRELIS [Suspect]
     Indication: HEPATITIS C
     Dosage: 800 MG;TID;PO
     Route: 048
     Dates: start: 20110901, end: 20111119
  6. ISENTRESS [Concomitant]
  7. RIBAVIRIN [Concomitant]
  8. PEGINTERFERON ALFA-2A [Concomitant]

REACTIONS (2)
  - PHLEBITIS [None]
  - DEEP VEIN THROMBOSIS [None]
